FAERS Safety Report 12905123 (Version 1)
Quarter: 2016Q4

REPORT INFORMATION
  Report Type: Report from Study
  Country: US (occurrence: US)
  Receive Date: 20161102
  Receipt Date: 20161102
  Transmission Date: 20170207
  Serious: No
  Sender: FDA-Public Use
  Company Number: US-AMGEN-USASL2016141545

PATIENT
  Age: 61 Year
  Sex: Female

DRUGS (1)
  1. ENBREL [Suspect]
     Active Substance: ETANERCEPT
     Indication: OSTEOARTHRITIS
     Dosage: UNK
     Route: 065
     Dates: start: 2013

REACTIONS (5)
  - Arthralgia [Unknown]
  - General symptom [Unknown]
  - Drug dose omission [Unknown]
  - Off label use [Unknown]
  - Joint stiffness [Unknown]

NARRATIVE: CASE EVENT DATE: 2013
